FAERS Safety Report 21386945 (Version 2)
Quarter: 2022Q3

REPORT INFORMATION
  Report Type: Report from Study
  Country: US (occurrence: US)
  Receive Date: 20220928
  Receipt Date: 20220930
  Transmission Date: 20221026
  Serious: Yes (Other)
  Sender: FDA-Public Use
  Company Number: US-GILEAD-2022-0597617

PATIENT
  Age: 41 Year
  Sex: Male

DRUGS (4)
  1. AMBRISENTAN [Suspect]
     Active Substance: AMBRISENTAN
     Indication: Pulmonary hypertension
     Dosage: 10 MG, QD
     Route: 065
     Dates: start: 20070727
  2. TYVASO [Suspect]
     Active Substance: TREPROSTINIL
     Indication: Pulmonary hypertension
     Dosage: 64 UG, QID
     Route: 065
     Dates: start: 20220714
  3. TYVASO [Suspect]
     Active Substance: TREPROSTINIL
     Dosage: 66 UG, QID
     Route: 065
     Dates: start: 20200617
  4. TADALAFIL [Suspect]
     Active Substance: TADALAFIL
     Indication: Pulmonary hypertension
     Dosage: 40 MG, QD
     Route: 065
     Dates: start: 20210414, end: 2022

REACTIONS (1)
  - Transplant [Unknown]
